FAERS Safety Report 10302495 (Version 2)
Quarter: 2014Q3

REPORT INFORMATION
  Report Type: Report from Study
  Country: US (occurrence: US)
  Receive Date: 20140714
  Receipt Date: 20140811
  Transmission Date: 20150326
  Serious: Yes (Hospitalization)
  Sender: FDA-Public Use
  Company Number: US-BRISTOL-MYERS SQUIBB COMPANY-21174479

PATIENT

DRUGS (24)
  1. ASPIRIN. [Concomitant]
     Active Substance: ASPIRIN
  2. POTASSIUM [Concomitant]
     Active Substance: POTASSIUM
  3. MORPHINE [Concomitant]
     Active Substance: MORPHINE
  4. FUROSEMIDE. [Concomitant]
     Active Substance: FUROSEMIDE
  5. ACETAMINOPHEN. [Concomitant]
     Active Substance: ACETAMINOPHEN
  6. CHOLECALCIFEROL [Concomitant]
     Active Substance: CHOLECALCIFEROL
  7. GABAPENTIN. [Concomitant]
     Active Substance: GABAPENTIN
  8. OXYCODONE [Concomitant]
     Active Substance: OXYCODONE
  9. ARIPIPRAZOLE [Suspect]
     Active Substance: ARIPIPRAZOLE
     Indication: DEPRESSION
     Dosage: LAST DATE STUDY DRUG TAKEN 26JUN2014
     Dates: start: 20140428
  10. TIOTROPIUM BROMIDE [Concomitant]
     Active Substance: TIOTROPIUM BROMIDE
  11. GUAIFENESIN. [Concomitant]
     Active Substance: GUAIFENESIN
  12. SPIRONOLACTONE. [Concomitant]
     Active Substance: SPIRONOLACTONE
  13. ALLOPURINOL. [Concomitant]
     Active Substance: ALLOPURINOL
  14. ATORVASTATIN [Concomitant]
     Active Substance: ATORVASTATIN
  15. BUDESONIDE. [Concomitant]
     Active Substance: BUDESONIDE
  16. LORATADINE. [Concomitant]
     Active Substance: LORATADINE
  17. ASCORBIC ACID. [Concomitant]
     Active Substance: ASCORBIC ACID
  18. METOPROLOL [Concomitant]
     Active Substance: METOPROLOL
  19. TAMSULOSIN [Concomitant]
     Active Substance: TAMSULOSIN
  20. FINASTERIDE. [Concomitant]
     Active Substance: FINASTERIDE
  21. FLUOXETINE [Concomitant]
     Active Substance: FLUOXETINE\FLUOXETINE HYDROCHLORIDE
  22. ALBUTEROL. [Concomitant]
     Active Substance: ALBUTEROL
  23. SENNOSIDES [Concomitant]
     Active Substance: SENNOSIDES
  24. PRAZOSIN [Concomitant]
     Active Substance: PRAZOSIN

REACTIONS (1)
  - Cardiac failure acute [Recovered/Resolved]

NARRATIVE: CASE EVENT DATE: 20140627
